FAERS Safety Report 19633141 (Version 2)
Quarter: 2021Q3

REPORT INFORMATION
  Report Type: Spontaneous
  Country: US (occurrence: US)
  Receive Date: 20210729
  Receipt Date: 20210805
  Transmission Date: 20211014
  Serious: Yes (Hospitalization)
  Sender: FDA-Public Use
  Company Number: US-TEVA-2021-US-1935847

PATIENT
  Age: 15 Year
  Sex: Female

DRUGS (7)
  1. LEUPROLIDE [Suspect]
     Active Substance: LEUPROLIDE
     Indication: OVULATION INDUCTION
     Dosage: 4MG
     Route: 065
  2. CABERGOLINE. [Suspect]
     Active Substance: CABERGOLINE
     Indication: PROPHYLAXIS
  3. HCG [Suspect]
     Active Substance: GONADOTROPHIN, CHORIONIC
     Indication: DRUG THERAPY
     Dosage: 1500IU
     Route: 065
  4. CABERGOLINE. [Suspect]
     Active Substance: CABERGOLINE
     Indication: OVARIAN HYPERSTIMULATION SYNDROME
     Dosage: 0.5MG
     Route: 067
  5. LETROZOLE. [Concomitant]
     Active Substance: LETROZOLE
     Indication: OVULATION INDUCTION
     Dosage: 7.5 MILLIGRAM DAILY;
     Route: 048
  6. CETRORELIX [Concomitant]
     Active Substance: CETRORELIX
     Indication: DRUG THERAPY
  7. LEUPROLIDE [Suspect]
     Active Substance: LEUPROLIDE
     Indication: DRUG THERAPY
     Dosage: DEPOT 3.75 MG
     Route: 065

REACTIONS (1)
  - Ovarian hyperstimulation syndrome [Recovered/Resolved]
